FAERS Safety Report 17021443 (Version 1)
Quarter: 2019Q4

REPORT INFORMATION
  Report Type: Spontaneous
  Country: US (occurrence: US)
  Receive Date: 20191112
  Receipt Date: 20191112
  Transmission Date: 20200122
  Serious: Yes (Other)
  Sender: FDA-Public Use
  Company Number: US-PFIZER INC-2019482258

PATIENT
  Sex: Female
  Weight: 52.16 kg

DRUGS (3)
  1. INVEGA [Suspect]
     Active Substance: PALIPERIDONE
     Indication: BEHAVIOUR DISORDER
     Dosage: UNK
     Dates: start: 201809
  2. GEODON [Suspect]
     Active Substance: ZIPRASIDONE HYDROCHLORIDE\ZIPRASIDONE MESYLATE
     Indication: BEHAVIOUR DISORDER
     Dosage: UNK [FOR OVER THREE WEEKS]
     Dates: start: 201809
  3. GEODON [Suspect]
     Active Substance: ZIPRASIDONE HYDROCHLORIDE\ZIPRASIDONE MESYLATE
     Dosage: UNK [FOR AN UNKNOWN PERIOD OF TIME]
     Dates: start: 201901

REACTIONS (5)
  - Off label use [Unknown]
  - Visual impairment [Unknown]
  - Skin burning sensation [Not Recovered/Not Resolved]
  - Product use in unapproved indication [Unknown]
  - Eye irritation [Not Recovered/Not Resolved]

NARRATIVE: CASE EVENT DATE: 201809
